FAERS Safety Report 13986221 (Version 1)
Quarter: 2017Q3

REPORT INFORMATION
  Report Type: Spontaneous
  Country: ES (occurrence: ES)
  Receive Date: 20170919
  Receipt Date: 20170919
  Transmission Date: 20171128
  Serious: Yes (Death)
  Sender: FDA-Public Use
  Company Number: ES-ROCHE-1994712

PATIENT
  Age: 96 Year
  Sex: Male

DRUGS (1)
  1. ACTILYSE [Suspect]
     Active Substance: ALTEPLASE
     Indication: ISCHAEMIC STROKE
     Dosage: 1 VIAL OF 20 MG + 1 SOLVENT VIAL?POWDER AND SOLVENT FOR PROLONGED-RELEASE SUSPENSION FOR INJECT
     Route: 042
     Dates: start: 20151203, end: 20151203

REACTIONS (1)
  - Cerebral haemorrhage [Fatal]

NARRATIVE: CASE EVENT DATE: 20151203
